FAERS Safety Report 6550845-7 (Version None)
Quarter: 2010Q1

REPORT INFORMATION
  Report Type: 
  Country: None (occurrence: None)
  Receive Date: 20100122
  Receipt Date: 20100122
  Transmission Date: 20100710
  Serious: Yes (Hospitalization)
  Sender: FDA-Public Use
  Company Number: None

PATIENT
  Sex: Female
  Weight: 69.91 kg

DRUGS (14)
  1. CETUXIMAB [Suspect]
  2. FLUOROURACIL [Suspect]
     Dosage: 7480 MG
  3. CISPLATIN [Suspect]
     Dosage: 139 MG
  4. DOCUSATE [Concomitant]
  5. HEPARIN [Concomitant]
  6. KAYEXALATE [Concomitant]
  7. LACTULOSE [Concomitant]
  8. LIDOCAINE [Concomitant]
  9. MAGNESIUM [Concomitant]
  10. MORPHINE [Concomitant]
  11. OXYCODONE [Concomitant]
  12. PANTOPRAZOLE [Concomitant]
  13. POTASSIUM CHLORIDE [Concomitant]
  14. SENNA CONCENTRATED [Concomitant]

REACTIONS (1)
  - CELLULITIS [None]
